FAERS Safety Report 5606411-0 (Version None)
Quarter: 2008Q1

REPORT INFORMATION
  Report Type: 
  Country: None (occurrence: None)
  Receive Date: 20080129
  Receipt Date: 20071219
  Transmission Date: 20080703
  Serious: No
  Sender: FDA-Public Use
  Company Number: A0685670A

PATIENT
  Age: 40 Year
  Sex: Female

DRUGS (6)
  1. WELLBUTRIN [Suspect]
     Indication: DRUG USE FOR UNKNOWN INDICATION
     Dosage: 150MG THREE TIMES PER DAY
     Route: 048
     Dates: start: 19980101, end: 19980101
  2. WELLBUTRIN [Suspect]
     Route: 048
  3. WELLBUTRIN XL [Suspect]
     Route: 048
  4. PAXIL [Suspect]
     Indication: DRUG USE FOR UNKNOWN INDICATION
     Route: 048
  5. WELLBUTRIN SR [Suspect]
     Dosage: 150MG THREE TIMES PER DAY
     Route: 048
  6. NO CONCURRENT MEDICATION [Concomitant]

REACTIONS (4)
  - DRUG INEFFECTIVE [None]
  - DRY EYE [None]
  - SOMNOLENCE [None]
  - SPEECH DISORDER [None]
